FAERS Safety Report 13139092 (Version 1)
Quarter: 2017Q1

REPORT INFORMATION
  Report Type: Spontaneous
  Country: GB (occurrence: GB)
  Receive Date: 20170123
  Receipt Date: 20170123
  Transmission Date: 20170428
  Serious: Yes (Disabling)
  Sender: FDA-Public Use
  Company Number: GB-TEVA-729476ACC

PATIENT
  Age: 76 Year
  Sex: Male
  Weight: 84 kg

DRUGS (10)
  1. ISOSORBIDE MONONITRATE. [Concomitant]
     Active Substance: ISOSORBIDE MONONITRATE
     Dosage: 60 MILLIGRAM DAILY;
  2. ASPIRIN. [Concomitant]
     Active Substance: ASPIRIN
     Dosage: 150 MILLIGRAM DAILY;
  3. GABAPENTIN. [Suspect]
     Active Substance: GABAPENTIN
     Indication: TRIGEMINAL NEURALGIA
     Dosage: 900 MILLIGRAM DAILY;
     Route: 048
     Dates: start: 201605
  4. ANADIN PARACETAMOL [Concomitant]
     Active Substance: ACETAMINOPHEN
  5. TILDIEM [Concomitant]
     Active Substance: DILTIAZEM HYDROCHLORIDE
     Dosage: 200 MILLIGRAM DAILY;
  6. XATRAL XL [Concomitant]
     Active Substance: ALFUZOSIN HYDROCHLORIDE
     Dosage: 200 MILLIGRAM DAILY;
  7. GABAPENTIN. [Suspect]
     Active Substance: GABAPENTIN
     Indication: TRIGEMINAL NEURALGIA
     Route: 048
  8. CLOPIDOGREL [Concomitant]
     Active Substance: CLOPIDOGREL BISULFATE
     Dosage: 75 MILLIGRAM DAILY;
  9. ATORVASTATIN [Concomitant]
     Active Substance: ATORVASTATIN
     Dosage: 10 MILLIGRAM DAILY;
  10. TELMISARTAN. [Concomitant]
     Active Substance: TELMISARTAN

REACTIONS (3)
  - Ejaculation delayed [Not Recovered/Not Resolved]
  - Bradyphrenia [Not Recovered/Not Resolved]
  - Muscle twitching [Not Recovered/Not Resolved]

NARRATIVE: CASE EVENT DATE: 201609
